FAERS Safety Report 14893746 (Version 1)
Quarter: 2018Q2

REPORT INFORMATION
  Report Type: Spontaneous
  Country: US (occurrence: US)
  Receive Date: 20180514
  Receipt Date: 20180514
  Transmission Date: 20180711
  Serious: No
  Sender: FDA-Public Use
  Company Number: US-IMPAX LABORATORIES, INC-2018-IPXL-00951

PATIENT
  Sex: Female

DRUGS (1)
  1. NADOLOL BENDROFLUMETHIAZIDE [Suspect]
     Active Substance: BENDROFLUMETHIAZIDE\NADOLOL
     Indication: BLOOD PRESSURE MANAGEMENT
     Dosage: UNK
     Route: 048

REACTIONS (1)
  - Pain in extremity [Unknown]
